FAERS Safety Report 17659902 (Version 6)
Quarter: 2022Q4

REPORT INFORMATION
  Report Type: Report from Study
  Country: US (occurrence: None)
  Receive Date: 20200413
  Receipt Date: 20221212
  Transmission Date: 20230112
  Serious: Yes (Hospitalization, Other)
  Sender: FDA-Public Use
  Company Number: US-ROCHE-2447058

PATIENT
  Age: 49 Year
  Sex: Male
  Weight: 64.6 kg

DRUGS (15)
  1. VENETOCLAX [Suspect]
     Active Substance: VENETOCLAX
     Indication: Chronic lymphocytic leukaemia
     Dosage: ON 22/OCT/2019, HE RECEIVED RECENT DOSE OF VENETOCLAX?DAYS 1 TO 7 CYCLE 3?LAST DOSE ADMINISTERED DAT
     Route: 048
     Dates: start: 20191015
  2. VENETOCLAX [Suspect]
     Active Substance: VENETOCLAX
     Dosage: DAYS 8 CYCLE (28 DAYS)-14
     Route: 048
  3. VENETOCLAX [Suspect]
     Active Substance: VENETOCLAX
     Dosage: DAYS 1-7 CYCLE 3, LAST ADMINISTRATION DATE: 22/OCT/2019
     Route: 048
     Dates: start: 20190723
  4. VENETOCLAX [Suspect]
     Active Substance: VENETOCLAX
     Dosage: ON 27/FEB/2020, HE RECEIVED LAST LAST ADMINISTRATION OF VENETOCLAX.
     Route: 048
     Dates: start: 20200206
  5. VENETOCLAX [Suspect]
     Active Substance: VENETOCLAX
     Dosage: DAYS 15-21 AND
     Route: 048
  6. VENETOCLAX [Suspect]
     Active Substance: VENETOCLAX
     Dosage: DAYS 22-28
     Route: 048
  7. VENETOCLAX [Suspect]
     Active Substance: VENETOCLAX
     Dosage: DAY 1-28 AND CYCLE 4 -14
     Route: 048
  8. OBINUTUZUMAB [Suspect]
     Active Substance: OBINUTUZUMAB
     Indication: Chronic lymphocytic leukaemia
     Dosage: ON 23/JUL/2019, HE RECEIVED LAST DOSE OF INTRAVENOUS OBINUTUZUMAB PRIOR TO ONSET OF ADVERSE EVENT?10
     Route: 042
     Dates: end: 20190806
  9. OBINUTUZUMAB [Suspect]
     Active Substance: OBINUTUZUMAB
     Dosage: 900 MG IV ON DAY 2, CYCLE 1
     Route: 042
  10. OBINUTUZUMAB [Suspect]
     Active Substance: OBINUTUZUMAB
     Dosage: 100 MG IV ON DAY 1, CYCLE 1, LAST ADMINISTRATION DATE: 15/OCT/2019
     Route: 042
     Dates: start: 20190723
  11. OBINUTUZUMAB [Suspect]
     Active Substance: OBINUTUZUMAB
     Dosage: ON 27/FEB/2020, HE RECEIVED LAST LAST ADMINISTRATION OF OBINITUZUMAB.
     Route: 042
     Dates: start: 20200206
  12. IBRUTINIB [Suspect]
     Active Substance: IBRUTINIB
     Indication: Chronic lymphocytic leukaemia
     Dosage: ON 23/JUL/2019, HE RECEIVED LAST DOSE OF ORAL IBRUTINIB PRIOR TO ONSET OF ADVERSE EVENT?ON DAYS 1-28
     Route: 048
     Dates: start: 20190723
  13. IBRUTINIB [Suspect]
     Active Substance: IBRUTINIB
     Dosage: ON 27/FEB/2020, HE RECEIVED LAST LAST ADMINISTRATION OF IBRUTINIB.
     Route: 048
     Dates: start: 20200206
  14. CEFEPIME [Concomitant]
     Active Substance: CEFEPIME HYDROCHLORIDE
     Route: 042
  15. VANCOMYCIN [Concomitant]
     Active Substance: VANCOMYCIN

REACTIONS (8)
  - Neutrophil count decreased [Not Recovered/Not Resolved]
  - White blood cell count decreased [Recovered/Resolved]
  - Autoimmune disorder [Not Recovered/Not Resolved]
  - Alanine aminotransferase increased [Not Recovered/Not Resolved]
  - Blood alkaline phosphatase increased [Not Recovered/Not Resolved]
  - Aspartate aminotransferase increased [Unknown]
  - Neutrophil count decreased [Not Recovered/Not Resolved]
  - White blood cell count decreased [Not Recovered/Not Resolved]

NARRATIVE: CASE EVENT DATE: 20190723
